FAERS Safety Report 24685737 (Version 1)
Quarter: 2024Q4

REPORT INFORMATION
  Report Type: Spontaneous
  Country: US (occurrence: None)
  Receive Date: 20241128
  Receipt Date: 20241128
  Transmission Date: 20250114
  Serious: Yes (Death, Hospitalization)
  Sender: Public
  Company Number: None

PATIENT
  Age: 77 Year
  Sex: Male
  Weight: 66.8 kg

DRUGS (6)
  1. FLUOROURACIL [Suspect]
     Active Substance: FLUOROURACIL
     Indication: Therapy interrupted
     Dates: end: 20210831
  2. FLUOROURACIL [Suspect]
     Active Substance: FLUOROURACIL
     Indication: Disease progression
  3. IRINOTECAN [Suspect]
     Active Substance: IRINOTECAN
     Indication: Therapy interrupted
     Dates: end: 20210831
  4. IRINOTECAN [Suspect]
     Active Substance: IRINOTECAN
     Indication: Disease progression
  5. LEUCOVORIN CALCIUM [Suspect]
     Active Substance: LEUCOVORIN CALCIUM
     Indication: Therapy interrupted
     Dates: end: 20210831
  6. LEUCOVORIN CALCIUM [Suspect]
     Active Substance: LEUCOVORIN CALCIUM
     Indication: Disease progression

REACTIONS (7)
  - Vomiting [None]
  - Foreign body in throat [None]
  - Vomiting [None]
  - Faecal vomiting [None]
  - Intestinal obstruction [None]
  - Ascites [None]
  - Metastases to peritoneum [None]

NARRATIVE: CASE EVENT DATE: 20210926
